FAERS Safety Report 16200413 (Version 2)
Quarter: 2020Q3

REPORT INFORMATION
  Report Type: Spontaneous
  Country: NL (occurrence: NL)
  Receive Date: 20190416
  Receipt Date: 20200910
  Transmission Date: 20201102
  Serious: Yes (Other)
  Sender: FDA-Public Use
  Company Number: NL-TEVA-2019-NL-1037064

PATIENT
  Age: 68 Year
  Sex: Female

DRUGS (6)
  1. FENTANYL CITRATE. [Suspect]
     Active Substance: FENTANYL CITRATE
     Indication: ARTHRALGIA
     Route: 065
  2. OXYNORM [Suspect]
     Active Substance: OXYCODONE HYDROCHLORIDE
     Indication: BACK PAIN
     Dosage: 5 MG, 2X/DAY
     Route: 048
     Dates: start: 20060309
  3. OXYNORM [Suspect]
     Active Substance: OXYCODONE HYDROCHLORIDE
     Indication: ARTHRALGIA
     Route: 065
  4. FENTANYL CITRATE. [Suspect]
     Active Substance: FENTANYL CITRATE
     Indication: BACK PAIN
     Dosage: 100 MCG/HOUR
     Route: 065
     Dates: start: 20060309
  5. PREGABALIN. [Suspect]
     Active Substance: PREGABALIN
     Indication: BACK PAIN
     Dosage: 300 MG, 2X/DAY,
     Route: 048
     Dates: start: 20051013
  6. PREGABALIN. [Suspect]
     Active Substance: PREGABALIN
     Indication: ARTHRALGIA
     Route: 065

REACTIONS (1)
  - Retinitis [Not Recovered/Not Resolved]

NARRATIVE: CASE EVENT DATE: 2006
